FAERS Safety Report 18862570 (Version 1)
Quarter: 2021Q1

REPORT INFORMATION
  Report Type: Spontaneous
  Country: US (occurrence: US)
  Receive Date: 20210208
  Receipt Date: 20210208
  Transmission Date: 20210420
  Serious: No
  Sender: FDA-Public Use
  Company Number: US-SA-2021SA034515

PATIENT
  Age: 54 Year
  Sex: Male

DRUGS (1)
  1. AUBAGIO [Suspect]
     Active Substance: TERIFLUNOMIDE

REACTIONS (6)
  - Condition aggravated [Unknown]
  - Pollakiuria [Unknown]
  - Gait inability [Unknown]
  - Impaired driving ability [Unknown]
  - Dysgraphia [Unknown]
  - Fall [Unknown]
